FAERS Safety Report 5675694-3 (Version None)
Quarter: 2008Q1

REPORT INFORMATION
  Report Type: 
  Country: None (occurrence: None)
  Receive Date: 20080321
  Receipt Date: 20080311
  Transmission Date: 20080703
  Serious: Yes (Other)
  Sender: FDA-Public Use
  Company Number: PHHY2008BR03164

PATIENT
  Age: 72 Year
  Sex: Male
  Weight: 70 kg

DRUGS (5)
  1. TAMARINE [Concomitant]
     Indication: CONSTIPATION
     Dosage: 1 TAB/DAY WHEN NEEDED
     Route: 048
  2. HUMECTOL D [Concomitant]
     Indication: CONSTIPATION
     Dosage: 1 TAB/DAY WHEN NEEDED
     Route: 048
  3. LISINOPRIL [Concomitant]
     Indication: HYPERTENSION
     Dosage: 20 MG, 1/2 TO 1 1/2 TAB/DAY WHEN NEEDED
     Route: 048
  4. ZELMAC [Suspect]
     Indication: IRRITABLE BOWEL SYNDROME
     Dosage: UNK, BID
     Route: 048
  5. ZELMAC [Suspect]
     Dosage: 1 TAB LUNCH + 1 TAB DINNER
     Route: 048

REACTIONS (4)
  - ABDOMINAL PAIN [None]
  - BLISTER [None]
  - COLECTOMY [None]
  - DIVERTICULUM [None]
